FAERS Safety Report 4382193-8 (Version None)
Quarter: 2004Q2

REPORT INFORMATION
  Report Type: 
  Country: None (occurrence: None)
  Receive Date: 20040615
  Receipt Date: 20040602
  Transmission Date: 20050107
  Serious: Yes (Hospitalization)
  Sender: FDA-Public Use
  Company Number: 2004033403

PATIENT
  Sex: Female

DRUGS (2)
  1. ZOLOFT [Suspect]
     Indication: DEMENTIA
     Dosage: UNK
     Route: 065
  2. ESTROPIPATE [Concomitant]

REACTIONS (1)
  - CSF PROTEIN INCREASED [None]
